FAERS Safety Report 20850279 (Version 1)
Quarter: 2022Q2

REPORT INFORMATION
  Report Type: Spontaneous
  Country: FR (occurrence: FR)
  Receive Date: 20220519
  Receipt Date: 20220519
  Transmission Date: 20220721
  Serious: Yes (Life-Threatening)
  Sender: FDA-Public Use
  Company Number: None

PATIENT
  Age: 30 Year
  Sex: Male

DRUGS (2)
  1. ZYPREXA [Interacting]
     Active Substance: OLANZAPINE
     Indication: Brief psychotic disorder with marked stressors
     Dosage: 10 MG, UNKNOWN
     Route: 048
     Dates: start: 20220315
  2. LOXAPINE SUCCINATE [Interacting]
     Active Substance: LOXAPINE SUCCINATE
     Indication: Brief psychotic disorder with marked stressors
     Dosage: 10 MG, EVERY 8 HRS
     Route: 048
     Dates: start: 20220315

REACTIONS (3)
  - Cerebral venous thrombosis [Recovered/Resolved with Sequelae]
  - Pulmonary embolism [Recovered/Resolved with Sequelae]
  - Drug interaction [Unknown]

NARRATIVE: CASE EVENT DATE: 20220321
